FAERS Safety Report 5854446-5 (Version None)
Quarter: 2008Q3

REPORT INFORMATION
  Report Type: 
  Country: None (occurrence: None)
  Receive Date: 20080822
  Receipt Date: 20080814
  Transmission Date: 20090109
  Serious: Yes (Other)
  Sender: FDA-Public Use
  Company Number: US-PFIZER INC-2008015049

PATIENT
  Sex: Female
  Weight: 81.818 kg

DRUGS (5)
  1. XALATAN [Suspect]
     Indication: GLAUCOMA
     Route: 047
  2. DRUG, UNSPECIFIED [Concomitant]
     Route: 031
  3. NEXIUM [Concomitant]
  4. SYNTHROID [Concomitant]
  5. CELEBREX [Concomitant]

REACTIONS (4)
  - DRY EYE [None]
  - EYE IRRITATION [None]
  - EYE OPERATION [None]
  - INFECTION [None]
